FAERS Safety Report 5789875-1 (Version None)
Quarter: 2008Q2

REPORT INFORMATION
  Report Type: 
  Country: None (occurrence: None)
  Receive Date: 20080626
  Receipt Date: 20080618
  Transmission Date: 20081010
  Serious: No
  Sender: FDA-Public Use
  Company Number: JP-ASTRAZENECA-2008AP03148

PATIENT
  Age: 28207 Day
  Sex: Male
  Weight: 65 kg

DRUGS (12)
  1. OMEPRAL [Suspect]
     Indication: DUODENAL ULCER HAEMORRHAGE
     Route: 048
     Dates: start: 20080329, end: 20080414
  2. OMEPRAL INJECTION [Suspect]
     Indication: DUODENAL ULCER HAEMORRHAGE
     Route: 041
     Dates: start: 20080325, end: 20080328
  3. FERROMIA [Suspect]
     Indication: ANAEMIA
     Route: 048
     Dates: start: 20080329
  4. EUGLUCON [Concomitant]
     Indication: TYPE 2 DIABETES MELLITUS
     Route: 048
  5. KERLONG [Concomitant]
     Indication: HYPERTENSION
     Route: 048
  6. HARNAL D [Concomitant]
     Indication: BENIGN PROSTATIC HYPERPLASIA
     Dosage: 1 TAB X 1/DAY
     Route: 048
  7. ALOSENN [Concomitant]
     Indication: CONSTIPATION
     Route: 048
  8. ZANTAC [Concomitant]
     Indication: GASTRIC ULCER
     Dosage: 1 TAB X 1/DAY
     Route: 048
  9. LUVOX [Concomitant]
     Indication: INSOMNIA
     Route: 048
  10. HALCION [Concomitant]
     Indication: INSOMNIA
     Route: 048
  11. MELBIN [Concomitant]
     Indication: TYPE 2 DIABETES MELLITUS
     Route: 048
  12. ADALAT [Concomitant]
     Indication: HYPERTENSION
     Route: 048

REACTIONS (1)
  - COLITIS COLLAGENOUS [None]
